FAERS Safety Report 5821276-X (Version None)
Quarter: 2008Q3

REPORT INFORMATION
  Report Type: 
  Country: None (occurrence: None)
  Receive Date: 20080724
  Receipt Date: 20080717
  Transmission Date: 20090109
  Serious: Yes (Other)
  Sender: FDA-Public Use
  Company Number: BR-ASTRAZENECA-2008UW14289

PATIENT
  Sex: Female
  Weight: 75 kg

DRUGS (2)
  1. NEXIUM [Suspect]
     Indication: GASTRITIS
     Route: 048
     Dates: start: 20080601
  2. NEXIUM [Suspect]
     Route: 048
     Dates: start: 20080707

REACTIONS (3)
  - ABDOMINAL PAIN UPPER [None]
  - NEUROPATHY PERIPHERAL [None]
  - PARAESTHESIA [None]
